FAERS Safety Report 7859672-1 (Version None)
Quarter: 2011Q4

REPORT INFORMATION
  Report Type: 
  Country: None (occurrence: None)
  Receive Date: 20111027
  Receipt Date: 20111018
  Transmission Date: 20120403
  Serious: Yes (Hospitalization)
  Sender: FDA-Public Use
  Company Number: US-JNJFOC-20110602091

PATIENT
  Sex: Male
  Weight: 42.6 kg

DRUGS (9)
  1. FLUCONAZOLE [Concomitant]
  2. REMICADE [Suspect]
     Route: 042
     Dates: start: 20110503
  3. LOPERAMIDE HCL [Concomitant]
  4. NYSTATIN [Concomitant]
  5. REMICADE [Suspect]
     Indication: COLITIS ULCERATIVE
     Route: 042
     Dates: start: 20100806
  6. MESALAMINE [Concomitant]
     Route: 054
  7. PREVPAC [Concomitant]
  8. ZOFRAN [Concomitant]
  9. PRILOSEC [Concomitant]

REACTIONS (2)
  - COLITIS ULCERATIVE [None]
  - DRUG INEFFECTIVE [None]
